FAERS Safety Report 8133060-5 (Version None)
Quarter: 2012Q1

REPORT INFORMATION
  Report Type: 
  Country: None (occurrence: None)
  Receive Date: 20120213
  Receipt Date: 20120202
  Transmission Date: 20120608
  Serious: Yes (Other)
  Sender: FDA-Public Use
  Company Number: PHHY2012FR009212

PATIENT
  Sex: Male

DRUGS (7)
  1. ASPIRIN [Concomitant]
     Dosage: 1 DF, QD (IN MORNING)
  2. EFFIENT [Concomitant]
     Dosage: 1 DF, QD
  3. IRBESARTAN [Concomitant]
     Dosage: 2 DF, QD (1 DF IN MORNING AND 1 DF IN EVENING)
  4. NEXIUM [Concomitant]
     Dosage: 1 DF, QD (IN EVENING)
  5. NEBIVOLOL HCL [Concomitant]
     Dosage: 1 DF, QD (IN MORNING)
  6. ONBREZ [Suspect]
     Indication: ASTHMA
     Dosage: 1 DF, QD IN THE MORNING
  7. LERCANIDIPINE [Concomitant]
     Dosage: 1 DF, QD (IN MORNING)

REACTIONS (1)
  - BLOOD PRESSURE INCREASED [None]
